FAERS Safety Report 10203963 (Version 1)
Quarter: 2014Q2

REPORT INFORMATION
  Report Type: Spontaneous
  Country: DE (occurrence: DE)
  Receive Date: 20140529
  Receipt Date: 20140529
  Transmission Date: 20141212
  Serious: Yes (Other)
  Sender: FDA-Public Use
  Company Number: DE-NOVOPROD-411133

PATIENT
  Age: 52 Year
  Sex: Male
  Weight: 122 kg

DRUGS (14)
  1. NOVORAPID [Suspect]
     Indication: PRODUCT USED FOR UNKNOWN INDICATION
     Dosage: UNK
     Route: 065
  2. NOVORAPID [Suspect]
     Dosage: 160 IE, QD (60-40-60)
     Route: 065
     Dates: start: 20120906
  3. NOVORAPID [Suspect]
     Dosage: 160 IE, QD (60-40-60)
     Route: 065
     Dates: start: 20120913
  4. NOVORAPID [Suspect]
     Dosage: 160 IE, QD (30-50-30-50)
     Route: 065
     Dates: start: 20120927
  5. NOVORAPID [Suspect]
     Dosage: 68 IE, QD (32-10-26 IE)
     Route: 065
  6. LEVEMIR [Suspect]
     Indication: PRODUCT USED FOR UNKNOWN INDICATION
     Dosage: UNK
     Route: 065
  7. LEVEMIR [Suspect]
     Dosage: 160 IE, QD
     Route: 065
     Dates: start: 20120906
  8. PROTAPHANE [Suspect]
     Indication: PRODUCT USED FOR UNKNOWN INDICATION
     Dosage: UNK
     Route: 065
  9. PROTAPHANE [Suspect]
     Dosage: 80 IE, QD (BEFORE BED TIME)
     Route: 065
     Dates: start: 20120906
  10. APIDRA [Concomitant]
     Indication: PRODUCT USED FOR UNKNOWN INDICATION
     Dosage: UNK
  11. APIDRA [Concomitant]
     Dosage: 40 IE, TID
  12. LANTUS [Concomitant]
     Indication: PRODUCT USED FOR UNKNOWN INDICATION
     Dosage: 170 IE, QD (50-0-0-120)
  13. LANTUS [Concomitant]
     Dosage: 170 IE, QD (50-0-120)
     Dates: start: 20120807
  14. JANUMET [Concomitant]
     Indication: PRODUCT USED FOR UNKNOWN INDICATION
     Dosage: 50/1000 (1-0-1)

REACTIONS (4)
  - Fall [Unknown]
  - Weight increased [Recovering/Resolving]
  - Polyneuropathy [Recovered/Resolved]
  - Blood glucose increased [Recovered/Resolved]
